FAERS Safety Report 8516516-2 (Version None)
Quarter: 2012Q3

REPORT INFORMATION
  Report Type: 
  Country: None (occurrence: None)
  Receive Date: 20120711
  Receipt Date: 20120711
  Transmission Date: 20120928
  Serious: No
  Sender: FDA-Public Use
  Company Number: None

PATIENT
  Age: 62 Year
  Sex: Male

DRUGS (8)
  1. REVLIMID [Suspect]
     Indication: MULTIPLE MYELOMA
     Dosage: 25MG QDX21D/28D ORALLY
     Route: 048
     Dates: start: 20110601, end: 20120601
  2. PROZAC [Concomitant]
  3. COXAAR [Concomitant]
  4. LOPRESSOR [Concomitant]
  5. ASPIRIN [Concomitant]
  6. XANAX [Concomitant]
  7. DECADRON [Concomitant]
  8. NORCO [Concomitant]

REACTIONS (1)
  - DIARRHOEA [None]
